FAERS Safety Report 9910432 (Version 3)
Quarter: 2014Q2

REPORT INFORMATION
  Report Type: Spontaneous
  Country: JP (occurrence: JP)
  Receive Date: 20140219
  Receipt Date: 20140402
  Transmission Date: 20141212
  Serious: Yes (Hospitalization)
  Sender: FDA-Public Use
  Company Number: JP-BAXTER-2014BAX008125

PATIENT
  Age: 67 Year
  Sex: Male

DRUGS (8)
  1. ENDOXAN [Suspect]
     Indication: PLASMA CELL MYELOMA
     Route: 048
     Dates: start: 20131003, end: 20131224
  2. ENDOXAN 1G [Suspect]
     Indication: PLASMA CELL MYELOMA
     Route: 041
     Dates: start: 20140121, end: 20140122
  3. BAKTAR [Concomitant]
     Indication: PROPHYLAXIS
     Route: 048
     Dates: start: 20131003
  4. VALTREX [Concomitant]
     Indication: PROPHYLAXIS
     Route: 048
     Dates: start: 20131003
  5. ONEALFA [Concomitant]
     Indication: LUMBAR VERTEBRAL FRACTURE
     Route: 048
     Dates: start: 20131003
  6. NEXIUM [Concomitant]
     Indication: PROPHYLAXIS
     Route: 048
     Dates: start: 20131003
  7. FLUCONAZOLE [Concomitant]
     Indication: PROPHYLAXIS
     Route: 048
     Dates: start: 20131003
  8. CEFEPIME [Concomitant]
     Indication: NEUTROPENIA
     Route: 041
     Dates: start: 20140203, end: 20140204

REACTIONS (2)
  - Prinzmetal angina [Recovering/Resolving]
  - Febrile neutropenia [Recovering/Resolving]
